FAERS Safety Report 7360661-4 (Version None)
Quarter: 2011Q1

REPORT INFORMATION
  Report Type: 
  Country: None (occurrence: None)
  Receive Date: 20110315
  Receipt Date: 20110315
  Transmission Date: 20110831
  Serious: No
  Sender: FDA-Public Use
  Company Number: None

PATIENT
  Age: 56 Year
  Sex: Male
  Weight: 89.8122 kg

DRUGS (4)
  1. RAPAFLO [Suspect]
     Indication: PROSTATIC PAIN
     Dosage: 1 CAP EVENING PO
     Route: 048
     Dates: start: 20110310, end: 20110312
  2. NEXIUM [Concomitant]
  3. H2 INHIBITOR [Concomitant]
  4. PROTON PUMP INHIBITOR [Concomitant]

REACTIONS (7)
  - PAIN IN EXTREMITY [None]
  - PALPITATIONS [None]
  - MICTURITION URGENCY [None]
  - TESTICULAR PAIN [None]
  - UNEVALUABLE EVENT [None]
  - AGITATION [None]
  - FACIAL PAIN [None]
